FAERS Safety Report 6578821-9 (Version None)
Quarter: 2010Q1

REPORT INFORMATION
  Report Type: 
  Country: None (occurrence: None)
  Receive Date: 20100202
  Receipt Date: 20100119
  Transmission Date: 20100710
  Serious: Yes (Other)
  Sender: FDA-Public Use
  Company Number: CERZ-1001118

PATIENT
  Age: 6 Year
  Sex: Male
  Weight: 16 kg

DRUGS (1)
  1. CEREZYME [Suspect]
     Indication: GAUCHER'S DISEASE
     Dosage: 68 U/KG, Q2W, INTRAVENOUS
     Route: 042
     Dates: start: 20060203

REACTIONS (8)
  - ACUTE RESPIRATORY FAILURE [None]
  - BRONCHITIS [None]
  - CONDITION AGGRAVATED [None]
  - DISEASE COMPLICATION [None]
  - EPILEPSY [None]
  - GASTROENTERITIS [None]
  - NEUROLOGICAL SYMPTOM [None]
  - PNEUMONIA [None]
